FAERS Safety Report 17403301 (Version 1)
Quarter: 2020Q1

REPORT INFORMATION
  Report Type: Spontaneous
  Country: US (occurrence: US)
  Receive Date: 20200211
  Receipt Date: 20200211
  Transmission Date: 20200409
  Serious: No
  Sender: FDA-Public Use
  Company Number: US-PERRIGO-19US004220

PATIENT
  Sex: Female

DRUGS (9)
  1. TRETINOIN 0.05% CREAM (2L4) [Suspect]
     Active Substance: TRETINOIN
     Dosage: SMALL AMOUNT, QD
     Route: 061
     Dates: start: 201902
  2. WELLBUTRIN [Concomitant]
     Active Substance: BUPROPION HYDROCHLORIDE
     Indication: DEPRESSION
     Dosage: UNK
     Route: 065
  3. WELLBUTRIN [Concomitant]
     Active Substance: BUPROPION HYDROCHLORIDE
     Indication: ANXIETY
  4. NEURONTIN [Concomitant]
     Active Substance: GABAPENTIN
     Indication: RESTLESS LEGS SYNDROME
     Dosage: UNK
     Route: 065
     Dates: start: 201812
  5. TRETINOIN 0.05% CREAM (2L4) [Suspect]
     Active Substance: TRETINOIN
     Dosage: UNK
  6. PAXIL [Concomitant]
     Active Substance: PAROXETINE HYDROCHLORIDE
     Indication: DEPRESSION
     Dosage: UNK
     Route: 065
  7. TRETINOIN 0.05% CREAM (2L4) [Suspect]
     Active Substance: TRETINOIN
     Indication: SKIN WRINKLING
     Dosage: SMALL AMOUNT, PRN
     Route: 061
     Dates: start: 2018, end: 201902
  8. PAXIL [Concomitant]
     Active Substance: PAROXETINE HYDROCHLORIDE
     Indication: ANXIETY
  9. PRILOSEC [Concomitant]
     Active Substance: OMEPRAZOLE MAGNESIUM
     Indication: GASTROOESOPHAGEAL REFLUX DISEASE
     Dosage: UNK
     Route: 065

REACTIONS (4)
  - Application site pruritus [Recovered/Resolved]
  - Application site irritation [Recovered/Resolved]
  - Application site dryness [Recovered/Resolved]
  - Drug ineffective for unapproved indication [Unknown]

NARRATIVE: CASE EVENT DATE: 2018
